FAERS Safety Report 20443464 (Version 1)
Quarter: 2022Q1

REPORT INFORMATION
  Report Type: Spontaneous
  Country: US (occurrence: None)
  Receive Date: 20220207
  Receipt Date: 20220207
  Transmission Date: 20220423
  Serious: Yes (Other)
  Sender: FDA-Public Use
  Company Number: None

PATIENT
  Age: 54 Year
  Sex: Female
  Weight: 78.75 kg

DRUGS (1)
  1. PANZYGA [Suspect]
     Active Substance: HUMAN IMMUNOGLOBULIN G
     Indication: Immunodeficiency common variable
     Dosage: OTHER FREQUENCY : 1DQ4W;?
     Route: 042

REACTIONS (3)
  - Migraine [None]
  - Musculoskeletal stiffness [None]
  - Neck pain [None]

NARRATIVE: CASE EVENT DATE: 20220114
